FAERS Safety Report 23572107 (Version 2)
Quarter: 2024Q2

REPORT INFORMATION
  Report Type: Spontaneous
  Country: US (occurrence: US)
  Receive Date: 20240227
  Receipt Date: 20240528
  Transmission Date: 20240715
  Serious: No
  Sender: FDA-Public Use
  Company Number: US-AVADEL CNS PHARMACEUTICALS, LLC-2024AVA00129

PATIENT
  Age: 38 Year
  Sex: Female

DRUGS (1)
  1. LUMRYZ [Suspect]
     Active Substance: SODIUM OXYBATE
     Indication: Narcolepsy
     Dosage: 9 G, ONCE NIGHTLY
     Route: 048
     Dates: start: 202401

REACTIONS (5)
  - Influenza [Not Recovered/Not Resolved]
  - Upper respiratory tract infection [Unknown]
  - Aversion [Unknown]
  - Food aversion [Unknown]
  - Nausea [Unknown]

NARRATIVE: CASE EVENT DATE: 20240101
